FAERS Safety Report 24065013 (Version 1)
Quarter: 2024Q3

REPORT INFORMATION
  Report Type: Spontaneous
  Country: US (occurrence: None)
  Receive Date: 20240708
  Receipt Date: 20240708
  Transmission Date: 20241017
  Serious: Yes (Life-Threatening)
  Sender: Public
  Company Number: None

PATIENT
  Age: 62 Year
  Sex: Female

DRUGS (1)
  1. HUMIRA [Suspect]
     Active Substance: ADALIMUMAB
     Indication: Psoriatic arthropathy
     Dosage: FREQUENCY : EVERY OTHER WEEK;?
     Route: 058

REACTIONS (8)
  - Dysphagia [None]
  - Pyrexia [None]
  - Oropharyngeal pain [None]
  - Chest discomfort [None]
  - Dyspnoea [None]
  - Headache [None]
  - Blindness unilateral [None]
  - Adverse drug reaction [None]
